FAERS Safety Report 7999299-4 (Version None)
Quarter: 2011Q4

REPORT INFORMATION
  Report Type: 
  Country: None (occurrence: None)
  Receive Date: 20111221
  Receipt Date: 20111214
  Transmission Date: 20120403
  Serious: Yes (Disabling)
  Sender: FDA-Public Use
  Company Number: PHHY2011NO108901

PATIENT
  Sex: Male

DRUGS (4)
  1. ASPIRIN [Concomitant]
     Indication: PROPHYLAXIS
     Dosage: 160 MG, QD
     Route: 048
     Dates: start: 20010101
  2. NEXIUM [Concomitant]
     Indication: OESOPHAGEAL DISORDER
     Dosage: 40 MG, QD
     Route: 048
     Dates: start: 20040101
  3. FLUTICASONE PROPIONATE/SALMETEROL [Concomitant]
     Indication: ASTHMA
     Route: 055
  4. SIMVASTATIN [Suspect]
     Indication: PROPHYLAXIS
     Dosage: 40 MG, QD
     Route: 048
     Dates: start: 20010101, end: 20110101

REACTIONS (5)
  - MUSCLE SPASMS [None]
  - ASTHENIA [None]
  - MUSCLE ATROPHY [None]
  - MUSCULOSKELETAL STIFFNESS [None]
  - MYALGIA [None]
